FAERS Safety Report 10907638 (Version 4)
Quarter: 2015Q2

REPORT INFORMATION
  Report Type: Spontaneous
  Country: US (occurrence: US)
  Receive Date: 20150312
  Receipt Date: 20150423
  Transmission Date: 20150821
  Serious: Yes (Other)
  Sender: FDA-Public Use
  Company Number: US-AMGEN-USASP2015022254

PATIENT
  Age: 55 Year
  Sex: Male

DRUGS (35)
  1. CELEBREX [Suspect]
     Active Substance: CELECOXIB
     Indication: RHEUMATOID ARTHRITIS
     Dosage: 200 MG, DAILY
     Route: 048
     Dates: start: 20100209
  2. DICLOFENAC [Concomitant]
     Active Substance: DICLOFENAC
     Dosage: 75 MG, DAILY
     Route: 048
     Dates: start: 200603, end: 200902
  3. FLOVENT [Concomitant]
     Active Substance: FLUTICASONE PROPIONATE
     Dosage: UNK UNK, BID
     Dates: start: 201106, end: 2013
  4. PULMICORT TURBUHALER [Concomitant]
     Active Substance: BUDESONIDE
     Dosage: UNK, AS DIRECTED
     Route: 045
     Dates: start: 2011, end: 2013
  5. METHOTREXATE [Concomitant]
     Active Substance: METHOTREXATE
     Dosage: 2.5 UNK, 6 PER WEEK
     Dates: start: 19911105
  6. METHOTREXATE [Concomitant]
     Active Substance: METHOTREXATE
     Dosage: 2.5 MG, 6 PER WEEK
     Dates: start: 201307, end: 201406
  7. BUDESONIDE. [Concomitant]
     Active Substance: BUDESONIDE
     Dosage: 1 MG/2ML USE IN 4 MI SALINE
     Dates: start: 201102, end: 2011
  8. METHOTREXATE [Concomitant]
     Active Substance: METHOTREXATE
     Dosage: 2.5 MG, 5 PER WEEK
     Dates: start: 19930120
  9. NAPROXEN. [Concomitant]
     Active Substance: NAPROXEN
     Dosage: UNK
     Dates: start: 199011, end: 199906
  10. HUMIRA [Concomitant]
     Active Substance: ADALIMUMAB
     Dosage: 40 MG, Q2WK
     Route: 058
     Dates: start: 201012, end: 201105
  11. FOLIC ACID. [Concomitant]
     Active Substance: FOLIC ACID
     Dosage: 2 DAILY
     Route: 048
     Dates: start: 199505, end: 201406
  12. METHOTREXATE [Concomitant]
     Active Substance: METHOTREXATE
     Dosage: 2.5 MG, 4 PER WEEK
     Dates: start: 19980918
  13. METHOTREXATE [Concomitant]
     Active Substance: METHOTREXATE
     Dosage: 2.5 MG, 5 PER WEEK
     Dates: start: 20110809
  14. ZANTAC [Concomitant]
     Active Substance: RANITIDINE HYDROCHLORIDE
     Dosage: 150 MG, DAILY
     Route: 048
     Dates: start: 2011, end: 2013
  15. PRED FORTE [Concomitant]
     Active Substance: PREDNISOLONE ACETATE
     Dosage: UNK, 1 DROP L EYE/D
     Dates: start: 2013, end: 2014
  16. ENBREL [Suspect]
     Active Substance: ETANERCEPT
     Indication: PRODUCT USED FOR UNKNOWN INDICATION
     Dosage: 25 MG, 2 TIMES/WK
     Route: 058
     Dates: start: 199901, end: 201305
  17. UROXATRAL [Concomitant]
     Active Substance: ALFUZOSIN HYDROCHLORIDE
     Dosage: 10 MG, 1 DAILY
     Route: 048
     Dates: start: 200712, end: 201212
  18. METHOTREXATE [Concomitant]
     Active Substance: METHOTREXATE
     Dosage: 2.5 MG, QWK, 4 PER WEEK WEEKS
     Route: 048
     Dates: start: 19910319
  19. METHOTREXATE [Concomitant]
     Active Substance: METHOTREXATE
     Dosage: 2.5 MG, 2 PER WEEK
     Dates: start: 20010321
  20. FLOVENT [Concomitant]
     Active Substance: FLUTICASONE PROPIONATE
     Dosage: UNK, BID
     Dates: start: 2013
  21. PREDNISONE. [Concomitant]
     Active Substance: PREDNISONE
     Dosage: 5 MG, 2 DAILY
     Route: 048
     Dates: start: 201309, end: 2013
  22. METHOTREXATE [Concomitant]
     Active Substance: METHOTREXATE
     Dosage: 2.5 MG, 4 PER WEEK
     Dates: start: 19991201
  23. JALYN [Concomitant]
     Active Substance: DUTASTERIDE\TAMSULOSIN HYDROCHLORIDE
     Dosage: 1 DAILY
     Route: 048
     Dates: start: 201012
  24. VIOXX [Concomitant]
     Active Substance: ROFECOXIB
     Dosage: UNK
     Dates: end: 200409
  25. ADVAIR HFA [Concomitant]
     Active Substance: FLUTICASONE PROPIONATE\SALMETEROL XINAFOATE
     Dosage: UNK UNK, BID
     Dates: start: 201103, end: 201106
  26. ORENCIA [Concomitant]
     Active Substance: ABATACEPT
     Dosage: 125 MG, QWK
     Route: 058
     Dates: start: 201205, end: 201211
  27. PRILOSEC [Concomitant]
     Active Substance: OMEPRAZOLE MAGNESIUM
     Dosage: 20 MG,1 DAILY
     Route: 048
     Dates: start: 2011, end: 2013
  28. RITUXIMAB [Concomitant]
     Active Substance: RITUXIMAB
     Dosage: 1000 MG, 2 DOSES 14 DAYS APART
     Route: 042
     Dates: start: 201306, end: 201306
  29. METHOTREXATE [Concomitant]
     Active Substance: METHOTREXATE
     Dosage: 2.5 MG, 4 PER WEEK
     Dates: start: 20080610
  30. XELJANZ [Suspect]
     Active Substance: TOFACITINIB CITRATE
     Indication: RHEUMATOID ARTHRITIS
     Dosage: 5 MG, BID
     Route: 048
     Dates: start: 201310
  31. NASONEX [Concomitant]
     Active Substance: MOMETASONE FUROATE
     Dosage: 1 SPRAY BID
     Dates: start: 2007, end: 2011
  32. PREDNISONE. [Concomitant]
     Active Substance: PREDNISONE
     Dosage: 40 MG/D TO ZERO
     Dates: start: 201406, end: 201412
  33. METHOTREXATE [Concomitant]
     Active Substance: METHOTREXATE
     Dosage: 2.5 MG, 6 PER WEEK
     Dates: start: 19940112
  34. METHOTREXATE [Concomitant]
     Active Substance: METHOTREXATE
     Dosage: 2.5 MG, 5 PER WEEK
     Dates: start: 19981102
  35. METHOTREXATE [Concomitant]
     Active Substance: METHOTREXATE
     Dosage: 2.5 MG, 3 PER WEEK
     Dates: start: 20000814

REACTIONS (7)
  - Sleep apnoea syndrome [Unknown]
  - Retinal vein occlusion [Not Recovered/Not Resolved]
  - Sinus operation [Unknown]
  - Interstitial lung disease [Unknown]
  - Fatigue [Unknown]
  - Colonoscopy [Unknown]
  - Therapeutic response decreased [Unknown]

NARRATIVE: CASE EVENT DATE: 200206
